FAERS Safety Report 5384852-7 (Version None)
Quarter: 2007Q3

REPORT INFORMATION
  Report Type: 
  Country: None (occurrence: None)
  Receive Date: 20070706
  Receipt Date: 20070530
  Transmission Date: 20080115
  Serious: No
  Sender: FDA-Public Use
  Company Number: PHEH2007US08211

PATIENT
  Sex: Female

DRUGS (1)
  1. TEKTURNA [Suspect]
     Indication: HYPERTENSION
     Dosage: 150 MG;QD;ORAL; 300 MG;QD;ORAL
     Route: 048
     Dates: start: 20070401

REACTIONS (2)
  - DIZZINESS [None]
  - SOMNOLENCE [None]
